FAERS Safety Report 6717480-9 (Version None)
Quarter: 2010Q2

REPORT INFORMATION
  Report Type: 
  Country: None (occurrence: None)
  Receive Date: 20100510
  Receipt Date: 20100429
  Transmission Date: 20101027
  Serious: Yes (Hospitalization, Other)
  Sender: FDA-Public Use
  Company Number: US-SANOFI-AVENTIS-2010SA025464

PATIENT
  Age: 74 Year
  Sex: Female

DRUGS (6)
  1. LANTUS [Suspect]
     Indication: TYPE 2 DIABETES MELLITUS
     Dosage: DOSE:30 UNIT(S)
     Route: 058
  2. OPTICLICK [Suspect]
  3. MELOXICAM [Concomitant]
     Route: 065
  4. NORTRIPTYLINE HCL [Concomitant]
  5. VASOTEC [Concomitant]
     Route: 065
  6. STOOL SOFTENER [Concomitant]

REACTIONS (3)
  - ARTERIAL OCCLUSIVE DISEASE [None]
  - CATARACT [None]
  - PNEUMONIA [None]
